FAERS Safety Report 7526913-X (Version None)
Quarter: 2011Q2

REPORT INFORMATION
  Report Type: 
  Country: None (occurrence: None)
  Receive Date: 20110606
  Receipt Date: 20040209
  Transmission Date: 20111010
  Serious: Yes (Other)
  Sender: FDA-Public Use
  Company Number: PHFR2004GB00628

PATIENT
  Sex: Male

DRUGS (3)
  1. CARBAMAZEPINE [Concomitant]
     Dosage: 400 MG/DAY
     Route: 048
  2. PAROXETINE [Concomitant]
  3. CLOZAPINE [Suspect]
     Indication: SCHIZOPHRENIA
     Dosage: 200 MG/DAY
     Route: 048
     Dates: start: 20030109

REACTIONS (2)
  - PANCREATIC MASS [None]
  - ABDOMINAL PAIN [None]
